FAERS Safety Report 4676766-2 (Version None)
Quarter: 2005Q2

REPORT INFORMATION
  Report Type: 
  Country: None (occurrence: None)
  Receive Date: 20050527
  Receipt Date: 20050516
  Transmission Date: 20051028
  Serious: Yes (Other)
  Sender: FDA-Public Use
  Company Number: 2005076336

PATIENT
  Age: 72 Year
  Sex: Female

DRUGS (4)
  1. NORVASC [Suspect]
     Indication: HYPERTENSION
     Dosage: 5 MG (5 MG, 1 IN 1 D), ORAL
     Route: 048
  2. CRESTOR [Suspect]
     Indication: BLOOD CHOLESTEROL INCREASED
     Dosage: ORAL
     Route: 048
     Dates: start: 20040101, end: 20050328
  3. ZETIA [Suspect]
     Indication: BLOOD CHOLESTEROL INCREASED
     Dosage: 5 (5 MG, 1 IN 1 D)
     Dates: start: 20040101
  4. FISH OIL (FISH OIL) [Suspect]
     Indication: BLOOD CHOLESTEROL INCREASED
     Dosage: ORAL
     Route: 048
     Dates: start: 20040101, end: 20050101

REACTIONS (6)
  - ARTHRITIS [None]
  - BLOOD CHOLESTEROL INCREASED [None]
  - LYMPHOMA [None]
  - PRURITUS [None]
  - RASH [None]
  - WEIGHT DECREASED [None]
